FAERS Safety Report 22125521 (Version 1)
Quarter: 2023Q1

REPORT INFORMATION
  Report Type: Spontaneous
  Country: CA (occurrence: CA)
  Receive Date: 20230322
  Receipt Date: 20230322
  Transmission Date: 20230417
  Serious: Yes (Hospitalization)
  Sender: FDA-Public Use
  Company Number: CA-APIL-2308488US

PATIENT
  Sex: Female

DRUGS (16)
  1. BOTOX [Suspect]
     Active Substance: ONABOTULINUMTOXINA
     Indication: Hypertonic bladder
     Dosage: 100 UNITS, SINGLE
     Route: 030
  2. VENLAFAXINE HYDROCHLORIDE [Concomitant]
     Active Substance: VENLAFAXINE HYDROCHLORIDE
  3. NORTRIPTYLINE [Concomitant]
     Active Substance: NORTRIPTYLINE
  4. WARFARIN [Concomitant]
     Active Substance: WARFARIN
  5. HYDROMORPHONE [Concomitant]
     Active Substance: HYDROMORPHONE
  6. OXAZEPAM [Concomitant]
     Active Substance: OXAZEPAM
  7. QUETIAPINE [Concomitant]
     Active Substance: QUETIAPINE
  8. OZEMPIC [Concomitant]
     Active Substance: SEMAGLUTIDE
     Dosage: SOLUTION
     Route: 058
  9. ACETAMINOPHEN\CODEINE PHOSPHATE [Concomitant]
     Active Substance: ACETAMINOPHEN\CODEINE PHOSPHATE
  10. SOLIFENACIN [Concomitant]
     Active Substance: SOLIFENACIN
  11. BACLOFEN [Concomitant]
     Active Substance: BACLOFEN
  12. METFORMIN [Concomitant]
     Active Substance: METFORMIN HYDROCHLORIDE
  13. SENNA PLUS [SENNA ALEXANDRINA] [Concomitant]
  14. GABAPENTIN [Concomitant]
     Active Substance: GABAPENTIN
  15. PANTOPRAZOLE [Concomitant]
     Active Substance: PANTOPRAZOLE
  16. ROSUVASTATIN [Concomitant]
     Active Substance: ROSUVASTATIN

REACTIONS (1)
  - Fall [Recovered/Resolved]
